FAERS Safety Report 8164699-9 (Version None)
Quarter: 2012Q1

REPORT INFORMATION
  Report Type: 
  Country: None (occurrence: None)
  Receive Date: 20120227
  Receipt Date: 20120215
  Transmission Date: 20120608
  Serious: No
  Sender: FDA-Public Use
  Company Number: US-BIOGENIDEC-2011BI043561

PATIENT
  Age: 41 Year
  Sex: Female

DRUGS (2)
  1. TYSABRI [Suspect]
     Indication: MULTIPLE SCLEROSIS
     Route: 042
     Dates: start: 20050131
  2. TYSABRI [Suspect]
     Route: 042
     Dates: start: 20100115, end: 20110801

REACTIONS (2)
  - HERPES ZOSTER [None]
  - MULTIPLE SCLEROSIS RELAPSE [None]
